FAERS Safety Report 4552949-7 (Version None)
Quarter: 2005Q1

REPORT INFORMATION
  Report Type: 
  Country: None (occurrence: None)
  Receive Date: 20050112
  Receipt Date: 20050112
  Transmission Date: 20050727
  Serious: No
  Sender: FDA-Public Use
  Company Number: None

PATIENT
  Age: 38 Year
  Sex: Female
  Weight: 78.0187 kg

DRUGS (1)
  1. BENAZEPRIL HCL [Suspect]

REACTIONS (1)
  - PRURITUS GENERALISED [None]
